FAERS Safety Report 8457092-2 (Version None)
Quarter: 2012Q2

REPORT INFORMATION
  Report Type: 
  Country: None (occurrence: None)
  Receive Date: 20120621
  Receipt Date: 20120608
  Transmission Date: 20120825
  Serious: No
  Sender: FDA-Public Use
  Company Number: US-BAYER-2012-058370

PATIENT

DRUGS (5)
  1. ALEVE (CAPLET) [Suspect]
     Indication: HEADACHE
     Route: 048
  2. VICODIN [Concomitant]
  3. IBUPROFEN (ADVIL) [Concomitant]
  4. ASPIRIN [Suspect]
     Indication: HEADACHE
     Route: 048
  5. TYLENOL W/ CODEINE NO. 3 [Concomitant]

REACTIONS (1)
  - MIGRAINE [None]
